FAERS Safety Report 12109906 (Version 2)
Quarter: 2016Q1

REPORT INFORMATION
  Report Type: Spontaneous
  Country: JP (occurrence: JP)
  Receive Date: 20160224
  Receipt Date: 20160311
  Transmission Date: 20160526
  Serious: Yes (Other)
  Sender: FDA-Public Use
  Company Number: JP-PFIZER INC-2016110684

PATIENT
  Age: 80 Year
  Sex: Male

DRUGS (1)
  1. TAZOPIP [Suspect]
     Active Substance: PIPERACETAZINE\TAZOBACTAM
     Dosage: UNK
     Route: 042

REACTIONS (1)
  - Renal disorder [Unknown]
